FAERS Safety Report 23791258 (Version 1)
Quarter: 2024Q2

REPORT INFORMATION
  Report Type: Report from Study
  Country: US (occurrence: US)
  Receive Date: 20240428
  Receipt Date: 20240428
  Transmission Date: 20240716
  Serious: Yes (Hospitalization)
  Sender: FDA-Public Use
  Company Number: US-ABBVIE-5734467

PATIENT
  Age: 60 Year
  Sex: Female

DRUGS (1)
  1. QULIPTA [Suspect]
     Active Substance: ATOGEPANT
     Indication: Product used for unknown indication
     Route: 048
     Dates: start: 20220605

REACTIONS (4)
  - Blood pressure fluctuation [Unknown]
  - Dehydration [Unknown]
  - Intentional product misuse [Unknown]
  - Migraine [Unknown]

NARRATIVE: CASE EVENT DATE: 20231201
